FAERS Safety Report 12726769 (Version 2)
Quarter: 2016Q3

REPORT INFORMATION
  Report Type: Spontaneous
  Country: BR (occurrence: BR)
  Receive Date: 20160908
  Receipt Date: 20160914
  Transmission Date: 20161109
  Serious: Yes (Hospitalization, Other)
  Sender: FDA-Public Use
  Company Number: BR-ASTRAZENECA-2016SE94824

PATIENT
  Age: 40 Year
  Sex: Female
  Weight: 70 kg

DRUGS (29)
  1. DIPYRONE [Concomitant]
     Active Substance: DIPYRONE
     Route: 048
  2. CODEINE [Concomitant]
     Active Substance: CODEINE
     Dosage: EVERY SIX  HOURS
     Route: 048
  3. VALPROATE [Concomitant]
     Active Substance: VALPROIC ACID
     Dosage: EVERY EIGHT HOURS
     Route: 048
     Dates: start: 20160707, end: 20160711
  4. CIPROFLOXACIN. [Concomitant]
     Active Substance: CIPROFLOXACIN
     Dosage: EVERY EIGHT HOURS
     Route: 050
     Dates: start: 20160710
  5. DEXAMETHASONE. [Concomitant]
     Active Substance: DEXAMETHASONE
     Dosage: EVERY SIX HOURS
     Route: 048
  6. POLYVITAMINS [Concomitant]
     Route: 048
     Dates: end: 20160710
  7. CODEINE [Concomitant]
     Active Substance: CODEINE
     Dosage: EVERY EIGHT HOURS
     Route: 048
     Dates: start: 20160704
  8. NALOXONE [Concomitant]
     Active Substance: NALOXONE
     Route: 042
     Dates: start: 20160711
  9. LINEZOLIDE [Concomitant]
     Active Substance: LINEZOLID
     Dosage: EVERY 12 HOURS
     Route: 042
     Dates: start: 20160710
  10. PHENYTOIN. [Interacting]
     Active Substance: PHENYTOIN
     Dosage: UNKNOWN DOSE, EVERY EIGHT HOURS
     Route: 048
     Dates: start: 20160607, end: 20160707
  11. PARACETAMOL [Concomitant]
     Active Substance: ACETAMINOPHEN
     Dosage: EVERY SIX HOURS
     Route: 048
     Dates: start: 20160705
  12. KETOPROFEN. [Concomitant]
     Active Substance: KETOPROFEN
     Dosage: EVERY 12 HOURS
     Route: 048
     Dates: start: 20160707, end: 20160710
  13. RANITIDINE. [Concomitant]
     Active Substance: RANITIDINE
     Dosage: EVERY 12 HOURS
     Route: 042
     Dates: start: 20160712, end: 20160802
  14. LORAZEPAM. [Concomitant]
     Active Substance: LORAZEPAM
     Dosage: AT NIGHT
     Route: 048
     Dates: start: 20160707, end: 20160710
  15. METHYLPREDNISOLONE. [Concomitant]
     Active Substance: METHYLPREDNISOLONE
     Dosage: EVERY 12 HOURS
     Route: 042
     Dates: start: 20160710, end: 20160711
  16. OMEPRAZOLE. [Suspect]
     Active Substance: OMEPRAZOLE
     Dosage: UNKNOWN DOSE, DAILY
     Route: 048
     Dates: start: 20151002, end: 20160712
  17. MORPHINE [Concomitant]
     Active Substance: MORPHINE
     Dosage: EVERY FOUR HOURS
     Route: 048
  18. BISACODIL [Concomitant]
     Dosage: DAILY
     Route: 048
     Dates: end: 20160710
  19. CEFTRIAXONE. [Concomitant]
     Active Substance: CEFTRIAXONE
     Dosage: EVERY 12 HOURS
     Route: 042
     Dates: start: 20160704, end: 20160707
  20. METRONIDAZOLE. [Concomitant]
     Active Substance: METRONIDAZOLE
     Dosage: EVERY EIGHT HOURS
     Route: 042
     Dates: start: 20160707, end: 20160708
  21. VANCOMICINE [Concomitant]
     Dosage: EVERY 12 HOURS
     Route: 042
     Dates: start: 20160707, end: 20160708
  22. DIAZEPAM. [Concomitant]
     Active Substance: DIAZEPAM
     Route: 042
     Dates: start: 20160707, end: 20160710
  23. ONDANSETRONE [Concomitant]
     Active Substance: ONDANSETRON
     Dosage: EVERY EIGHT HOURS
     Route: 042
     Dates: start: 20160704
  24. MEROPENEM. [Suspect]
     Active Substance: MEROPENEM
     Dosage: UNKNOWN DOSE, THREE TIMES A DAY
     Route: 042
     Dates: start: 20160711
  25. CLINDAMYCIN [Concomitant]
     Active Substance: CLINDAMYCIN\CLINDAMYCIN PHOSPHATE
     Dosage: EVERY SIX HOURS
     Route: 042
     Dates: start: 20160705, end: 20160707
  26. AMITRIPTYLINE [Concomitant]
     Active Substance: AMITRIPTYLINE
     Dosage: AT NIGHT
     Route: 048
     Dates: start: 20160704, end: 20160710
  27. LACTULOSE. [Concomitant]
     Active Substance: LACTULOSE
     Dosage: EVERY EIGHT HOURS
     Route: 048
     Dates: start: 20160705, end: 20160707
  28. MORPHINE [Concomitant]
     Active Substance: MORPHINE
     Dosage: EVERY FOUR HOURS
     Route: 048
  29. PIPERACILLIN AND TAZOBACTAM [Concomitant]
     Active Substance: PIPERACILLIN SODIUM\TAZOBACTAM SODIUM
     Dosage: EVERY SIX HOURS
     Route: 042
     Dates: start: 20160707, end: 20160708

REACTIONS (13)
  - Seizure [Unknown]
  - Skin disorder [Unknown]
  - Eye discharge [Unknown]
  - Pyrexia [Unknown]
  - Metastases to bone [Unknown]
  - Metastases to central nervous system [Not Recovered/Not Resolved]
  - Hyperaemia [Unknown]
  - Radiation skin injury [Unknown]
  - Toxic epidermal necrolysis [Recovering/Resolving]
  - Cellulitis [Unknown]
  - Sinusitis [Unknown]
  - Drug interaction [Unknown]
  - Breast cancer female [Unknown]

NARRATIVE: CASE EVENT DATE: 2016
